FAERS Safety Report 24118288 (Version 1)
Quarter: 2024Q3

REPORT INFORMATION
  Report Type: Spontaneous
  Country: AU (occurrence: AU)
  Receive Date: 20240722
  Receipt Date: 20240722
  Transmission Date: 20241017
  Serious: Yes (Death, Hospitalization, Other)
  Sender: MERCK
  Company Number: AU-009507513-2407AUS010863

PATIENT
  Age: 74 Year
  Sex: Female

DRUGS (1)
  1. PEMBROLIZUMAB [Suspect]
     Active Substance: PEMBROLIZUMAB
     Indication: Malignant melanoma
     Dosage: UNK
     Route: 042
     Dates: start: 20230719, end: 2023

REACTIONS (4)
  - Cardiomyopathy [Fatal]
  - Myasthenia gravis crisis [Fatal]
  - Myocarditis [Fatal]
  - COVID-19 [Unknown]

NARRATIVE: CASE EVENT DATE: 20230101
